FAERS Safety Report 8058854-6 (Version None)
Quarter: 2012Q1

REPORT INFORMATION
  Report Type: 
  Country: None (occurrence: None)
  Receive Date: 20120120
  Receipt Date: 20111110
  Transmission Date: 20120608
  Serious: Yes (Hospitalization)
  Sender: FDA-Public Use
  Company Number: US-BRISTOL-MYERS SQUIBB COMPANY-16227795

PATIENT

DRUGS (1)
  1. IPILIMUMAB [Suspect]

REACTIONS (1)
  - COLITIS [None]
